FAERS Safety Report 9852615 (Version 2)
Quarter: 2014Q1

REPORT INFORMATION
  Report Type: Spontaneous
  Country: US (occurrence: US)
  Receive Date: 20140129
  Receipt Date: 20140204
  Transmission Date: 20141002
  Serious: Yes (Other)
  Sender: FDA-Public Use
  Company Number: US-JNJFOC-20140115659

PATIENT
  Age: 59 Year
  Sex: Female
  Weight: 91.63 kg

DRUGS (18)
  1. XARELTO [Suspect]
     Indication: THROMBOSIS PROPHYLAXIS
     Route: 048
     Dates: start: 20131011
  2. XARELTO [Suspect]
     Indication: DEEP VEIN THROMBOSIS
     Route: 048
     Dates: start: 20131011
  3. TRAMADOL HYDROCHLORIDE [Concomitant]
     Indication: NEUROPATHY PERIPHERAL
     Dosage: 150MG TWICE DAILY
     Route: 048
     Dates: start: 2013
  4. TRAMADOL HYDROCHLORIDE [Concomitant]
     Indication: THROMBOSIS
     Dosage: 150MG TWICE DAILY
     Route: 048
     Dates: start: 2013
  5. TRAMADOL HYDROCHLORIDE [Concomitant]
     Indication: STENT PLACEMENT
     Dosage: 150MG TWICE DAILY
     Route: 048
     Dates: start: 2013
  6. GABAPENTIN [Concomitant]
     Indication: NEUROPATHY PERIPHERAL
     Route: 048
     Dates: start: 2001
  7. GABAPENTIN [Concomitant]
     Indication: THROMBOSIS
     Route: 048
     Dates: start: 2001
  8. GABAPENTIN [Concomitant]
     Indication: STENT PLACEMENT
     Route: 048
     Dates: start: 2001
  9. TIZANIDINE HYDROCHLORIDE [Concomitant]
     Indication: NEUROPATHY PERIPHERAL
     Route: 048
  10. TIZANIDINE HYDROCHLORIDE [Concomitant]
     Indication: THROMBOSIS
     Route: 048
  11. TIZANIDINE HYDROCHLORIDE [Concomitant]
     Indication: STENT PLACEMENT
     Route: 048
  12. CYMBALTA [Concomitant]
     Indication: DEPRESSION
     Route: 048
     Dates: start: 2013
  13. CYMBALTA [Concomitant]
     Indication: NEUROPATHY PERIPHERAL
     Route: 048
     Dates: start: 2013
  14. NEXIUM [Concomitant]
     Indication: HYPERCHLORHYDRIA
     Route: 048
     Dates: start: 201311
  15. PROPRANOLOL [Concomitant]
     Indication: MIGRAINE
     Route: 048
     Dates: start: 2011
  16. LISINOPRIL HCTZ [Concomitant]
     Indication: BLOOD PRESSURE
     Dosage: 20-25 MG
     Route: 048
     Dates: start: 2006
  17. METFORMIN HCL [Concomitant]
     Indication: DIABETES MELLITUS
     Route: 048
     Dates: start: 2004
  18. ALPRAZOLAM [Concomitant]
     Indication: ANXIETY
     Dosage: ADDITIONALLY AS NEEDED
     Route: 048
     Dates: start: 2011

REACTIONS (11)
  - Abnormal loss of weight [Recovering/Resolving]
  - Colitis [Not Recovered/Not Resolved]
  - Serum ferritin decreased [Unknown]
  - International normalised ratio increased [Not Recovered/Not Resolved]
  - Anaemia [Unknown]
  - Haemorrhage [Unknown]
  - Abdominal pain upper [Not Recovered/Not Resolved]
  - Disturbance in attention [Unknown]
  - Insomnia [Unknown]
  - Decreased appetite [Recovered/Resolved]
  - Abdominal distension [Not Recovered/Not Resolved]
